FAERS Safety Report 6946304-X (Version None)
Quarter: 2010Q3

REPORT INFORMATION
  Report Type: 
  Country: None (occurrence: None)
  Receive Date: 20100827
  Receipt Date: 20100824
  Transmission Date: 20110219
  Serious: Yes (Hospitalization)
  Sender: FDA-Public Use
  Company Number: ZA-ALLERGAN-0915547US

PATIENT
  Age: 30 Year
  Sex: Female

DRUGS (1)
  1. BOTOX [Suspect]
     Indication: HYPERHIDROSIS
     Dosage: 105 UNITS, SINGLE
     Route: 023
     Dates: start: 20091022, end: 20091022

REACTIONS (3)
  - DRUG ADMINISTRATION ERROR [None]
  - PREGNANCY [None]
  - PREMATURE LABOUR [None]
